FAERS Safety Report 6899120-1 (Version None)
Quarter: 2010Q3

REPORT INFORMATION
  Report Type: 
  Country: None (occurrence: None)
  Receive Date: 20100802
  Receipt Date: 20080105
  Transmission Date: 20110219
  Serious: Yes (Other)
  Sender: FDA-Public Use
  Company Number: US-PFIZER INC-2007100626

PATIENT
  Sex: Female
  Weight: 73.5 kg

DRUGS (3)
  1. LYRICA [Suspect]
     Indication: PAIN
     Dates: start: 20061228, end: 20071001
  2. LYRICA [Suspect]
     Indication: HERPES ZOSTER
  3. LEXAPRO [Concomitant]

REACTIONS (8)
  - ASTHENIA [None]
  - COUGH [None]
  - DRUG INEFFECTIVE [None]
  - DYSPNOEA [None]
  - FATIGUE [None]
  - MUSCLE TWITCHING [None]
  - URINARY INCONTINENCE [None]
  - WEIGHT INCREASED [None]
